FAERS Safety Report 23722316 (Version 1)
Quarter: 2024Q2

REPORT INFORMATION
  Report Type: Spontaneous
  Country: US (occurrence: None)
  Receive Date: 20240408
  Receipt Date: 20240408
  Transmission Date: 20240716
  Serious: No
  Sender: FDA-Public Use
  Company Number: None

PATIENT
  Age: 50 Year
  Sex: Female
  Weight: 86.85 kg

DRUGS (11)
  1. SINGULAIR [Suspect]
     Active Substance: MONTELUKAST SODIUM
     Indication: Asthma
     Dosage: OTHER QUANTITY : 30 TABLET(S);?FREQUENCY : AT BEDTIME;?
     Route: 048
     Dates: end: 20240408
  2. PRADAXA [Concomitant]
     Active Substance: DABIGATRAN ETEXILATE MESYLATE
  3. UNSPECIFIED INGREDIENT [Concomitant]
     Active Substance: UNSPECIFIED INGREDIENT
  4. ALVESCO ALBUTEROL [Concomitant]
  5. TROSPIUMER ER [Concomitant]
  6. NALTREXONE [Concomitant]
     Active Substance: NALTREXONE
  7. VITAMIN B COMPLEX PREBIOTIC PROBIOTIC [Concomitant]
  8. DIMETHYL SULFONE [Concomitant]
     Active Substance: DIMETHYL SULFONE
  9. VITAMIN C [Concomitant]
     Active Substance: ASCORBIC ACID
  10. CALCIUM BITARTRATE [Concomitant]
  11. VIT A. [Concomitant]

REACTIONS (5)
  - Mental status changes [None]
  - Anxiety [None]
  - Loss of personal independence in daily activities [None]
  - Thinking abnormal [None]
  - Pain [None]

NARRATIVE: CASE EVENT DATE: 20240214
